FAERS Safety Report 8612883-X (Version None)
Quarter: 2012Q3

REPORT INFORMATION
  Report Type: 
  Country: None (occurrence: None)
  Receive Date: 20120822
  Receipt Date: 20120228
  Transmission Date: 20120928
  Serious: No
  Sender: FDA-Public Use
  Company Number: US-ALLERGAN-0100015US

PATIENT
  Sex: Male

DRUGS (1)
  1. SANCTURA XR [Suspect]
     Indication: URINARY INCONTINENCE
     Dosage: UNK
     Dates: start: 20110901

REACTIONS (1)
  - DRUG INEFFECTIVE [None]
